FAERS Safety Report 25369659 (Version 1)
Quarter: 2025Q2

REPORT INFORMATION
  Report Type: Spontaneous
  Country: US (occurrence: US)
  Receive Date: 20250528
  Receipt Date: 20250528
  Transmission Date: 20250716
  Serious: No
  Sender: EMD SERONO INC
  Company Number: US-Merck Healthcare KGaA-2025023465

PATIENT
  Age: 43 Year
  Sex: Female

DRUGS (3)
  1. MAVENCLAD [Suspect]
     Active Substance: CLADRIBINE
     Indication: Multiple sclerosis
     Dates: start: 20231130, end: 20231204
  2. MAVENCLAD [Suspect]
     Active Substance: CLADRIBINE
  3. MAVENCLAD [Suspect]
     Active Substance: CLADRIBINE
     Dates: start: 20250503, end: 20250507

REACTIONS (2)
  - Headache [Unknown]
  - Somnolence [Unknown]

NARRATIVE: CASE EVENT DATE: 20250503
